FAERS Safety Report 4959225-9 (Version None)
Quarter: 2006Q1

REPORT INFORMATION
  Report Type: 
  Country: None (occurrence: None)
  Receive Date: 20060130
  Receipt Date: 20050701
  Transmission Date: 20060701
  Serious: Yes (Hospitalization)
  Sender: FDA-Public Use
  Company Number: 142525USA

PATIENT
  Age: 39 Year
  Sex: Female

DRUGS (2)
  1. COPAXONE [Suspect]
     Indication: MULTIPLE SCLEROSIS
     Dates: start: 20040813, end: 20041010
  2. AVONEX [Suspect]
     Indication: MULTIPLE SCLEROSIS
     Dates: start: 20041001

REACTIONS (4)
  - INJECTION SITE REACTION [None]
  - OOPHORECTOMY [None]
  - UTERINE HAEMORRHAGE [None]
  - UTERINE LEIOMYOMA [None]
